FAERS Safety Report 25941127 (Version 1)
Quarter: 2025Q4

REPORT INFORMATION
  Report Type: Spontaneous
  Country: EU (occurrence: EU)
  Receive Date: 20251020
  Receipt Date: 20251020
  Transmission Date: 20260118
  Serious: Yes (Other)
  Sender: TAKEDA
  Company Number: EU-TAKEDA-2025TUS090710

PATIENT
  Sex: Male

DRUGS (3)
  1. FRUZAQLA [Suspect]
     Active Substance: FRUQUINTINIB
     Indication: Colorectal cancer metastatic
     Dosage: 5 MILLIGRAM
  2. FRUZAQLA [Suspect]
     Active Substance: FRUQUINTINIB
     Dosage: 3 MILLIGRAM
  3. REGORAFENIB [Concomitant]
     Active Substance: REGORAFENIB
     Dosage: UNK

REACTIONS (2)
  - Haematotoxicity [Unknown]
  - Hypertension [Unknown]
